FAERS Safety Report 14115409 (Version 2)
Quarter: 2017Q4

REPORT INFORMATION
  Report Type: Spontaneous
  Country: US (occurrence: US)
  Receive Date: 20171023
  Receipt Date: 20171122
  Transmission Date: 20180321
  Serious: Yes (Hospitalization, Other)
  Sender: FDA-Public Use
  Company Number: US-009507513-1710USA008342

PATIENT
  Age: 81 Year
  Sex: Male

DRUGS (6)
  1. ASPIRIN. [Suspect]
     Active Substance: ASPIRIN
     Route: 048
  2. METOPROLOL. [Suspect]
     Active Substance: METOPROLOL
  3. ZOCOR [Suspect]
     Active Substance: SIMVASTATIN
     Route: 048
  4. BUPROPION HYDROCHLORIDE. [Suspect]
     Active Substance: BUPROPION HYDROCHLORIDE
  5. DOXAZOSIN [Suspect]
     Active Substance: DOXAZOSIN\DOXAZOSIN MESYLATE
  6. PROPECIA [Suspect]
     Active Substance: FINASTERIDE
     Route: 048

REACTIONS (7)
  - Atrial fibrillation [Unknown]
  - Subarachnoid haemorrhage [Unknown]
  - Haemorrhage intracranial [Unknown]
  - Syncope [Unknown]
  - Benign prostatic hyperplasia [Unknown]
  - Anxiety [Unknown]
  - Percutaneous coronary intervention [Unknown]
